FAERS Safety Report 20046638 (Version 2)
Quarter: 2021Q4

REPORT INFORMATION
  Report Type: Spontaneous
  Country: BE (occurrence: BE)
  Receive Date: 20211109
  Receipt Date: 20211202
  Transmission Date: 20220304
  Serious: Yes (Other)
  Sender: FDA-Public Use
  Company Number: BE-SA-SAC20211103000172

PATIENT

DRUGS (9)
  1. PRALUENT [Suspect]
     Active Substance: ALIROCUMAB
     Indication: Hypercholesterolaemia
     Dosage: 1 DF, QOW
     Route: 058
     Dates: start: 2019, end: 20211028
  2. SPIRONOLACTONE [Concomitant]
     Active Substance: SPIRONOLACTONE
     Indication: Cardiac failure
     Dosage: 25 MG/2D
  3. COZAAR [Concomitant]
     Active Substance: LOSARTAN POTASSIUM
     Indication: Hypertension
     Dosage: 100 MG, QD
  4. CREON [Concomitant]
     Active Substance: PANCRELIPASE AMYLASE\PANCRELIPASE LIPASE\PANCRELIPASE PROTEASE
     Indication: Pancreatic enzymes decreased
     Dosage: 40 MG, QD
  5. LORMETAZEPAM [Concomitant]
     Active Substance: LORMETAZEPAM
     Indication: Sleep disorder
     Dosage: 2 MG, QD
  6. TRAMADOL HYDROCHLORIDE [Concomitant]
     Active Substance: TRAMADOL HYDROCHLORIDE
     Indication: Abdominal pain
     Dosage: 100 MG, QD
  7. MOLSIDOMINE [Concomitant]
     Active Substance: MOLSIDOMINE
     Indication: Angina pectoris
     Dosage: 1/D
  8. VERAPAMIL HYDROCHLORIDE [Concomitant]
     Active Substance: VERAPAMIL HYDROCHLORIDE
     Indication: Hypertension
  9. PANTOMED [Concomitant]
     Indication: Gastrooesophageal reflux disease
     Dosage: 40 MG, QD

REACTIONS (5)
  - Pancreatic atrophy [Unknown]
  - Abdominal pain upper [Unknown]
  - Steatorrhoea [Unknown]
  - Exocrine pancreatic function test abnormal [Unknown]
  - Gastrointestinal disorder [Unknown]

NARRATIVE: CASE EVENT DATE: 20200101
